FAERS Safety Report 24015679 (Version 1)
Quarter: 2024Q2

REPORT INFORMATION
  Report Type: Spontaneous
  Country: IN (occurrence: IN)
  Receive Date: 20240626
  Receipt Date: 20240626
  Transmission Date: 20240716
  Serious: Yes (Death)
  Sender: FDA-Public Use
  Company Number: IN-PFIZER INC-202101058721

PATIENT
  Age: 38 Year
  Sex: Female

DRUGS (2)
  1. PALBOCICLIB [Suspect]
     Active Substance: PALBOCICLIB
     Dosage: 125 MG, 1X/DAY (0-0-1 21 DAYS ON/7 DAYS OFF)
     Route: 048
     Dates: start: 20200504
  2. LETROZOLE [Concomitant]
     Active Substance: LETROZOLE
     Dosage: 2.5 MG, 1X/DAY (0-0-1 X 30 DAYS)

REACTIONS (3)
  - Liver disorder [Fatal]
  - Off label use [Unknown]
  - Product use issue [Unknown]
